FAERS Safety Report 23922332 (Version 2)
Quarter: 2024Q4

REPORT INFORMATION
  Report Type: Spontaneous
  Country: US (occurrence: US)
  Receive Date: 20240531
  Receipt Date: 20241016
  Transmission Date: 20250115
  Serious: No
  Sender: CELLTRION
  Company Number: US-CELLTRION INC.-2024US008831

PATIENT

DRUGS (6)
  1. ADALIMUMAB [Suspect]
     Active Substance: ADALIMUMAB
     Indication: Juvenile idiopathic arthritis
     Dosage: 40 MG EVERY TWO WEEKS
     Route: 058
  2. ADALIMUMAB [Suspect]
     Active Substance: ADALIMUMAB
     Indication: Crohn^s disease
  3. INFLIXIMAB [Suspect]
     Active Substance: INFLIXIMAB
     Indication: Pachydermoperiostosis
  4. METHOTREXATE [Concomitant]
     Active Substance: METHOTREXATE
     Indication: Juvenile idiopathic arthritis
     Dosage: 10 MG WEEKLY
     Route: 048
  5. METHOTREXATE [Concomitant]
     Active Substance: METHOTREXATE
     Indication: Crohn^s disease
     Dosage: 20 MG WEEKLY
  6. METHOTREXATE [Concomitant]
     Active Substance: METHOTREXATE
     Indication: Pachydermoperiostosis
     Dosage: 20 MG WEEKLY
     Route: 058

REACTIONS (5)
  - Drug specific antibody present [Unknown]
  - Drug ineffective [Unknown]
  - Drug effect less than expected [Unknown]
  - Therapy partial responder [Unknown]
  - Intentional product use issue [Unknown]
